FAERS Safety Report 25445734 (Version 2)
Quarter: 2025Q3

REPORT INFORMATION
  Report Type: Report from Study
  Country: US (occurrence: US)
  Receive Date: 20250617
  Receipt Date: 20250707
  Transmission Date: 20251020
  Serious: Yes (Hospitalization, Other)
  Sender: ABBVIE
  Company Number: US-ABBVIE-6190039

PATIENT
  Age: 76 Year
  Sex: Female
  Weight: 113.39 kg

DRUGS (16)
  1. HUMIRA [Suspect]
     Active Substance: ADALIMUMAB
     Indication: Psoriatic arthropathy
     Dosage: CITRATE FREE, FORM STRENGTH: 40 MG
     Route: 058
     Dates: start: 20240408, end: 20250108
  2. HUMIRA [Suspect]
     Active Substance: ADALIMUMAB
     Dosage: CITRATE FREE, FORM STRENGTH: 40 MG
     Route: 058
     Dates: start: 202503
  3. AMITRIPTYLINE [Concomitant]
     Active Substance: AMITRIPTYLINE
     Indication: Fibromyalgia
  4. PREDNISONE [Concomitant]
     Active Substance: PREDNISONE
     Indication: Product used for unknown indication
  5. PREDNISONE [Concomitant]
     Active Substance: PREDNISONE
     Indication: Product used for unknown indication
  6. SYNTHROID [Concomitant]
     Active Substance: LEVOTHYROXINE SODIUM
     Indication: Thyroid disorder
  7. XYZAL [Concomitant]
     Active Substance: LEVOCETIRIZINE DIHYDROCHLORIDE
     Indication: Hypersensitivity
  8. MUCINEX [Concomitant]
     Active Substance: GUAIFENESIN
     Indication: Product used for unknown indication
  9. VITAMIN D [Concomitant]
     Active Substance: VITAMIN D NOS
     Indication: Product used for unknown indication
  10. HYDRALAZINE [Concomitant]
     Active Substance: HYDRALAZINE HYDROCHLORIDE
     Indication: Blood pressure measurement
  11. XIIDRA [Concomitant]
     Active Substance: LIFITEGRAST
     Indication: Dry eye
  12. ELIQUIS [Concomitant]
     Active Substance: APIXABAN
     Indication: Product used for unknown indication
  13. MIEBO [Concomitant]
     Active Substance: PERFLUOROHEXYLOCTANE
     Indication: Dry eye
  14. SINGULAIR [Concomitant]
     Active Substance: MONTELUKAST SODIUM
     Indication: Product used for unknown indication
  15. TYLENOL [Concomitant]
     Active Substance: ACETAMINOPHEN
     Indication: Pain
  16. CLONIDINE [Concomitant]
     Active Substance: CLONIDINE
     Indication: Hypertension

REACTIONS (8)
  - Blindness unilateral [Recovering/Resolving]
  - Cellulitis [Recovered/Resolved]
  - Uveitis [Recovering/Resolving]
  - Psoriatic arthropathy [Recovering/Resolving]
  - Vision blurred [Recovering/Resolving]
  - Scratch [Recovered/Resolved]
  - Pain [Recovering/Resolving]
  - Inflammation [Recovered/Resolved]

NARRATIVE: CASE EVENT DATE: 20250101
